FAERS Safety Report 12579657 (Version 1)
Quarter: 2016Q3

REPORT INFORMATION
  Report Type: Spontaneous
  Country: AU (occurrence: AU)
  Receive Date: 20160721
  Receipt Date: 20160721
  Transmission Date: 20161109
  Serious: Yes (Other)
  Sender: FDA-Public Use
  Company Number: AU-JNJFOC-20160714195

PATIENT

DRUGS (5)
  1. CARBAMAZEPINE. [Suspect]
     Active Substance: CARBAMAZEPINE
     Indication: EPILEPSY
     Route: 065
  2. LAMOTRIGINE. [Suspect]
     Active Substance: LAMOTRIGINE
     Indication: EPILEPSY
     Route: 065
  3. TOPIRAMATE. [Suspect]
     Active Substance: TOPIRAMATE
     Indication: EPILEPSY
     Route: 048
  4. VALPROATE [Suspect]
     Active Substance: VALPROIC ACID
     Indication: EPILEPSY
     Route: 065
  5. LEVETIRACETAM. [Suspect]
     Active Substance: LEVETIRACETAM
     Indication: EPILEPSY
     Route: 065

REACTIONS (11)
  - Atrial septal defect [Unknown]
  - Amblyopia [Unknown]
  - Brain malformation [Unknown]
  - Ankyloglossia congenital [Unknown]
  - Hypospadias [Unknown]
  - Skull malformation [Unknown]
  - Ventricular septal defect [Unknown]
  - Choanal atresia [Unknown]
  - Kidney duplex [Unknown]
  - Spina bifida [Unknown]
  - Hyperplasia [Unknown]
